FAERS Safety Report 9840563 (Version 2)
Quarter: 2014Q1

REPORT INFORMATION
  Report Type: Spontaneous
  Country: US (occurrence: US)
  Receive Date: 20140124
  Receipt Date: 20140303
  Transmission Date: 20141002
  Serious: No
  Sender: FDA-Public Use
  Company Number: US-PFIZER INC-2014019819

PATIENT
  Age: 57 Year
  Sex: Female

DRUGS (16)
  1. LIPITOR [Suspect]
     Indication: BLOOD CHOLESTEROL INCREASED
     Dosage: 20 MG, 1X/DAY
     Route: 048
     Dates: start: 20080320, end: 20090821
  2. NEXIUM [Concomitant]
     Dosage: 40 MG, 1X/DAY
     Route: 048
     Dates: start: 20080114, end: 20080118
  3. NEXIUM [Concomitant]
     Dosage: 40 MG, 2X/DAY
     Route: 048
     Dates: start: 20080118, end: 20110801
  4. NEXIUM [Concomitant]
     Dosage: 40 MG, 1X/DAY
     Route: 048
     Dates: start: 20120928
  5. TYLENOL [Concomitant]
     Dosage: UNK
  6. SERTRALINE HYDROCHLORIDE [Concomitant]
     Dosage: 100 MG, 1X/DAY
     Route: 048
     Dates: start: 20080915, end: 20110421
  7. SERTRALINE HYDROCHLORIDE [Concomitant]
     Dosage: 150 MG, 1X/DAY
     Route: 048
     Dates: start: 20110420
  8. IRON [Concomitant]
     Dosage: UNK
  9. AMITRIPTYLINE [Concomitant]
     Dosage: 30 MG, AT BEDTIME
  10. VITAMIN D [Concomitant]
     Dosage: 5000 IU, WEEKLY
     Route: 048
  11. FERROUS SULPHATE [Concomitant]
     Dosage: 325 MG (65 MG FE) (1DF), 1X/DAY
     Route: 048
     Dates: start: 20080118
  12. MACROBID [Concomitant]
     Dosage: 100 MG (1 TAB), AS NEEDED
  13. TRANSDERM SCOP [Concomitant]
     Dosage: 1.5 MG, EVERY 3 DAYS AS NEEDED
     Dates: start: 20060623, end: 20090821
  14. TRANSDERM SCOP [Concomitant]
     Dosage: UNK, AS DIRECTED
     Dates: start: 20100513, end: 20100518
  15. ESTRACE [Concomitant]
     Dosage: 0.1 MG/G, 3 TIMES A WEEK
     Dates: end: 20100618
  16. PLAQUENIL [Concomitant]
     Dosage: 200 MG, 2X/DAY
     Route: 048
     Dates: end: 20130430

REACTIONS (2)
  - Drug hypersensitivity [Unknown]
  - Myalgia [Recovered/Resolved]
